FAERS Safety Report 7361382-4 (Version None)
Quarter: 2011Q1

REPORT INFORMATION
  Report Type: 
  Country: None (occurrence: None)
  Receive Date: 20110318
  Receipt Date: 20110314
  Transmission Date: 20110831
  Serious: Yes (Death, Hospitalization, Other)
  Sender: FDA-Public Use
  Company Number: US-BAYER-201030703NA

PATIENT
  Sex: Female
  Weight: 82 kg

DRUGS (2)
  1. ERLOTINIB [Suspect]
     Indication: PANCREATIC CARCINOMA
     Route: 048
     Dates: start: 20100719, end: 20100818
  2. SORAFENIB (RAF KINASE INHIBITOR) [Suspect]
     Indication: PANCREATIC CARCINOMA
     Route: 048
     Dates: start: 20100719, end: 20100818

REACTIONS (5)
  - BACK PAIN [None]
  - ACUTE RESPIRATORY FAILURE [None]
  - LUNG INFILTRATION [None]
  - SPINAL COMPRESSION FRACTURE [None]
  - SPINAL FRACTURE [None]
